FAERS Safety Report 7782461-3 (Version None)
Quarter: 2011Q3

REPORT INFORMATION
  Report Type: 
  Country: None (occurrence: None)
  Receive Date: 20110928
  Receipt Date: 20110919
  Transmission Date: 20111222
  Serious: Yes (Hospitalization)
  Sender: FDA-Public Use
  Company Number: US-BIOGENIDEC-2011BI008178

PATIENT
  Age: 42 Year
  Sex: Female

DRUGS (3)
  1. AVONEX [Suspect]
     Indication: MULTIPLE SCLEROSIS
     Route: 030
     Dates: start: 20100720
  2. CELEXA [Concomitant]
  3. AVONEX [Suspect]
     Route: 030
     Dates: start: 20100720

REACTIONS (3)
  - URINARY TRACT INFECTION [None]
  - MULTIPLE SCLEROSIS [None]
  - DELIRIUM [None]
